FAERS Safety Report 10023061 (Version 2)
Quarter: 2014Q2

REPORT INFORMATION
  Report Type: Report from Study
  Country: US (occurrence: US)
  Receive Date: 20140319
  Receipt Date: 20140416
  Transmission Date: 20141212
  Serious: Yes (Hospitalization)
  Sender: FDA-Public Use
  Company Number: US-009507513-1403USA006955

PATIENT
  Age: 48 Year
  Sex: Female
  Weight: 56 kg

DRUGS (20)
  1. HEXADROL TABLETS [Suspect]
     Indication: NAUSEA
     Dosage: 20 MG, DAILYX5 DAYS
     Route: 048
     Dates: start: 20130724
  2. HEXADROL TABLETS [Suspect]
     Indication: VOMITING
     Dosage: 16 MG, DAILY X2 DAYS
     Route: 048
  3. HEXADROL TABLETS [Suspect]
     Dosage: 12 MG, DAILYX2 DAYS
     Route: 048
  4. HEXADROL TABLETS [Suspect]
     Dosage: 8 MG, DAILY
     Route: 048
  5. AXITINIB [Suspect]
     Indication: HEAD AND NECK CANCER
     Dosage: 3 MG, BID
     Route: 048
     Dates: start: 20130708, end: 20130730
  6. PROMETHAZINE [Concomitant]
  7. ALPRAZOLAM [Concomitant]
  8. ASCORBIC ACID [Concomitant]
  9. CHOLECALCIFEROL [Concomitant]
  10. CELEXA [Concomitant]
  11. FENTANYL [Concomitant]
  12. FLAXSEED [Concomitant]
  13. ADVAIR [Concomitant]
  14. GINSENG (UNSPECIFIED) [Concomitant]
  15. IBUPROFEN [Concomitant]
  16. MILK THISTLE [Concomitant]
  17. OMEGA-3 [Concomitant]
  18. OXYCONTIN [Concomitant]
  19. ROXICODONE [Concomitant]
  20. NYSTATIN [Concomitant]

REACTIONS (1)
  - Pneumonia [Unknown]
